FAERS Safety Report 6556844-3 (Version None)
Quarter: 2010Q1

REPORT INFORMATION
  Report Type: 
  Country: None (occurrence: None)
  Receive Date: 20100128
  Receipt Date: 20100121
  Transmission Date: 20100710
  Serious: Yes (Hospitalization)
  Sender: FDA-Public Use
  Company Number: PHHO2009US11401

PATIENT
  Sex: Male
  Weight: 63.5 kg

DRUGS (5)
  1. SANDOSTATIN LAR [Suspect]
     Indication: NEUROENDOCRINE TUMOUR
  2. PTK 787A T35913+TAB [Suspect]
     Indication: NEUROENDOCRINE TUMOUR
     Dosage: 1250 MG, QD
     Route: 048
     Dates: start: 20081008, end: 20090906
  3. PTK 787A T35913+TAB [Suspect]
     Dosage: 1000MG
     Route: 048
     Dates: start: 20090907, end: 20090907
  4. PTK 787A T35913+TAB [Suspect]
     Dosage: 1000MG
     Route: 048
     Dates: start: 20090909, end: 20090909
  5. PTK 787A T35913+TAB [Suspect]
     Dosage: UNK
     Route: 048
     Dates: start: 20090910

REACTIONS (4)
  - ASTHENIA [None]
  - DECREASED APPETITE [None]
  - DEHYDRATION [None]
  - FAILURE TO THRIVE [None]
